FAERS Safety Report 7523008-6 (Version None)
Quarter: 2011Q2

REPORT INFORMATION
  Report Type: 
  Country: None (occurrence: None)
  Receive Date: 20110603
  Receipt Date: 20110523
  Transmission Date: 20111010
  Serious: Yes (Hospitalization)
  Sender: FDA-Public Use
  Company Number: US-MERCK-0705USA05330

PATIENT
  Age: 61 Year
  Sex: Female

DRUGS (3)
  1. FOSAMAX [Suspect]
     Indication: OSTEOPENIA
     Route: 048
     Dates: start: 20021001, end: 20030401
  2. FOSAMAX [Suspect]
     Route: 048
     Dates: start: 20030401, end: 20060517
  3. FOSAMAX [Suspect]
     Route: 065
     Dates: start: 20021201

REACTIONS (13)
  - INCORRECT DOSE ADMINISTERED [None]
  - PARAESTHESIA [None]
  - MUSCULOSKELETAL STIFFNESS [None]
  - FALL [None]
  - PAIN IN JAW [None]
  - UTERINE LEIOMYOMA [None]
  - HEADACHE [None]
  - EYE MOVEMENT DISORDER [None]
  - OVERDOSE [None]
  - MIGRAINE [None]
  - TEMPOROMANDIBULAR JOINT SYNDROME [None]
  - NECK MASS [None]
  - NECK PAIN [None]
